FAERS Safety Report 10191986 (Version 2)
Quarter: 2014Q2

REPORT INFORMATION
  Report Type: Spontaneous
  Country: DE (occurrence: None)
  Receive Date: 20140521
  Receipt Date: 20140529
  Transmission Date: 20141212
  Serious: Yes (Congenital Anomaly, Other)
  Sender: FDA-Public Use
  Company Number: AUR-APL-2014-05861

PATIENT
  Sex: Female
  Weight: 3.24 kg

DRUGS (4)
  1. CANDESARTAN [Suspect]
     Indication: HYPERTENSION
     Route: 064
     Dates: start: 20130324, end: 20131111
  2. METFORMIN [Suspect]
     Indication: TYPE 2 DIABETES MELLITUS
     Dosage: 1000MG, 2 IN 1 D, TRANSPLACENTAL
     Route: 064
     Dates: start: 20130324, end: 20131111
  3. METOPROLOL (METOPROLOL) [Concomitant]
  4. FOLIO [Concomitant]

REACTIONS (2)
  - Ventricular septal defect [None]
  - Maternal drugs affecting foetus [None]
